FAERS Safety Report 6102217-7 (Version None)
Quarter: 2009Q1

REPORT INFORMATION
  Report Type: 
  Country: None (occurrence: None)
  Receive Date: 20090303
  Receipt Date: 20090303
  Transmission Date: 20090719
  Serious: Yes (Other)
  Sender: FDA-Public Use
  Company Number: None

PATIENT
  Age: 22 Year
  Sex: Female
  Weight: 53.5244 kg

DRUGS (1)
  1. SINGULAIR [Suspect]
     Indication: MULTIPLE ALLERGIES
     Dosage: 10 MG 1X

REACTIONS (5)
  - CONFUSIONAL STATE [None]
  - EYELID OEDEMA [None]
  - HEADACHE [None]
  - SWELLING FACE [None]
  - VISUAL IMPAIRMENT [None]
